FAERS Safety Report 15187426 (Version 2)
Quarter: 2019Q1

REPORT INFORMATION
  Report Type: Report from Study
  Country: US (occurrence: US)
  Receive Date: 20180723
  Receipt Date: 20190130
  Transmission Date: 20190417
  Serious: No
  Sender: FDA-Public Use
  Company Number: US-EXELIXIS-CABO-18013585

PATIENT
  Sex: Male

DRUGS (26)
  1. HYDROCORTISONE. [Concomitant]
     Active Substance: HYDROCORTISONE
  2. LISINOPRIL AND HYDROCHLOROTHIAZIDE [Concomitant]
     Active Substance: HYDROCHLOROTHIAZIDE\LISINOPRIL
  3. ANUSOL-HC [Concomitant]
  4. CABOMETYX [Suspect]
     Active Substance: CABOZANTINIB S-MALATE
     Indication: RENAL CANCER
     Dosage: 60 MG, QD
     Route: 048
     Dates: start: 20180228
  5. LORAZEPAM. [Concomitant]
     Active Substance: LORAZEPAM
  6. LOSARTAN POTASSIUM. [Concomitant]
     Active Substance: LOSARTAN POTASSIUM
  7. PREDNISOLONE ACETATE. [Concomitant]
     Active Substance: PREDNISOLONE ACETATE
  8. LEVOTHYROXINE SODIUM. [Concomitant]
     Active Substance: LEVOTHYROXINE SODIUM
  9. SYNTHROID [Concomitant]
     Active Substance: LEVOTHYROXINE SODIUM
  10. PANTOPRAZOLE SODIUM. [Concomitant]
     Active Substance: PANTOPRAZOLE SODIUM
  11. CABOMETYX [Suspect]
     Active Substance: CABOZANTINIB S-MALATE
     Dosage: 40 MG, QD
     Route: 048
  12. LISINOPRIL. [Concomitant]
     Active Substance: LISINOPRIL
  13. PROMETHAZINE - CODEINE [Concomitant]
     Active Substance: CODEINE\PROMETHAZINE
  14. FERROUS SULFATE. [Concomitant]
     Active Substance: FERROUS SULFATE
  15. VITAMIN B12 [Concomitant]
     Active Substance: CYANOCOBALAMIN
  16. TRAMADOL HCL [Concomitant]
     Active Substance: TRAMADOL HYDROCHLORIDE
  17. VOTRIENT [Concomitant]
     Active Substance: PAZOPANIB HYDROCHLORIDE
  18. PROCHLORPERAZINE MALEATE. [Concomitant]
     Active Substance: PROCHLORPERAZINE MALEATE
  19. ONDANSETRON HCL [Concomitant]
     Active Substance: ONDANSETRON HYDROCHLORIDE
  20. AZITHROMYCIN ANHYDROUS. [Concomitant]
     Active Substance: AZITHROMYCIN ANHYDROUS
  21. BENZONATATE. [Concomitant]
     Active Substance: BENZONATATE
  22. GABAPENTIN. [Concomitant]
     Active Substance: GABAPENTIN
  23. HYDROCHLOROTHIAZIDE. [Concomitant]
     Active Substance: HYDROCHLOROTHIAZIDE
  24. VITAMIN B COMPLEX [Concomitant]
     Active Substance: CYANOCOBALAMIN\DEXPANTHENOL\NIACINAMIDE\PYRIDOXINE HYDROCHLORIDE\RIBOFLAVIN 5^-PHOSPHATE SODIUM\THIAMINE HYDROCHLORIDE\VITAMIN B COMPLEX
  25. CABOMETYX [Suspect]
     Active Substance: CABOZANTINIB S-MALATE
     Dosage: 20 MG, QD
     Route: 048
  26. VITAMIN C [Concomitant]
     Active Substance: ASCORBIC ACID

REACTIONS (8)
  - Dry eye [Unknown]
  - Gait disturbance [Unknown]
  - Skin lesion [Unknown]
  - Vision blurred [Unknown]
  - Drug ineffective [Unknown]
  - Dyspepsia [Unknown]
  - Skin exfoliation [Unknown]
  - Pain in extremity [Unknown]
